FAERS Safety Report 10411868 (Version 2)
Quarter: 2015Q2

REPORT INFORMATION
  Report Type: Spontaneous
  Country: US (occurrence: None)
  Receive Date: 20140514
  Receipt Date: 20150515
  Transmission Date: 20150821
  Serious: Yes (Hospitalization)
  Sender: FDA-Public Use
  Company Number: 107847

PATIENT
  Sex: Male
  Weight: 65.8 kg

DRUGS (3)
  1. PREDNISONE. [Concomitant]
     Active Substance: PREDNISONE
  2. CIMZIA [Suspect]
     Active Substance: CERTOLIZUMAB PEGOL
     Indication: CROHN^S DISEASE
     Dosage: EV 4 WEEKS
     Dates: end: 201312
  3. TEMPASA [Concomitant]

REACTIONS (2)
  - Crohn^s disease [None]
  - Drug ineffective [None]
